FAERS Safety Report 16126950 (Version 1)
Quarter: 2019Q1

REPORT INFORMATION
  Report Type: Spontaneous
  Country: FR (occurrence: FR)
  Receive Date: 20190328
  Receipt Date: 20190328
  Transmission Date: 20190418
  Serious: Yes (Hospitalization)
  Sender: FDA-Public Use
  Company Number: FR-TEVA-2019-FR-1030273

PATIENT
  Age: 45 Year
  Sex: Male

DRUGS (2)
  1. ALPRAZOLAM. [Suspect]
     Active Substance: ALPRAZOLAM
     Indication: SUICIDE ATTEMPT
     Route: 048
     Dates: start: 20180227, end: 20180227
  2. PARACETAMOL [Suspect]
     Active Substance: ACETAMINOPHEN
     Indication: SUICIDE ATTEMPT
     Route: 048
     Dates: start: 20180227, end: 20180227

REACTIONS (4)
  - Oxygen saturation decreased [Recovered/Resolved]
  - Somnolence [Recovered/Resolved]
  - Respiratory rate decreased [Recovered/Resolved]
  - Toxicity to various agents [Recovered/Resolved]

NARRATIVE: CASE EVENT DATE: 20180227
